FAERS Safety Report 25961368 (Version 1)
Quarter: 2025Q4

REPORT INFORMATION
  Report Type: Spontaneous
  Country: US (occurrence: US)
  Receive Date: 20251027
  Receipt Date: 20251027
  Transmission Date: 20260117
  Serious: No
  Sender: JOHNSON AND JOHNSON
  Company Number: US-JNJFOC-20251022892

PATIENT
  Sex: Female

DRUGS (1)
  1. NIPOCALIMAB [Suspect]
     Active Substance: NIPOCALIMAB
     Indication: Myasthenia gravis
     Route: 065

REACTIONS (1)
  - Exposure during pregnancy [Unknown]
